FAERS Safety Report 24194254 (Version 1)
Quarter: 2024Q3

REPORT INFORMATION
  Report Type: Spontaneous
  Country: PT (occurrence: PT)
  Receive Date: 20240809
  Receipt Date: 20240809
  Transmission Date: 20241017
  Serious: Yes (Hospitalization, Other)
  Sender: INSUD PHARMA
  Company Number: PT-INSUD PHARMA-2407PT06163

PATIENT

DRUGS (4)
  1. NUVESSA [Suspect]
     Active Substance: METRONIDAZOLE
     Indication: Helicobacter infection
     Dosage: UNK
     Route: 065
  2. OMEPRAZOLE [Suspect]
     Active Substance: OMEPRAZOLE
     Indication: Helicobacter infection
     Dosage: UNK
     Route: 065
  3. BISMUTH SUBCITRATE [Suspect]
     Active Substance: BISMUTH SUBCITRATE
     Indication: Helicobacter infection
     Dosage: UNK
     Route: 065
  4. TETRACYCLINE [Suspect]
     Active Substance: TETRACYCLINE
     Indication: Helicobacter infection
     Dosage: UNK
     Route: 065

REACTIONS (5)
  - Pseudomembranous colitis [Recovered/Resolved]
  - Clostridium difficile colitis [Recovered/Resolved]
  - Pyrexia [Recovered/Resolved]
  - Diarrhoea [Recovered/Resolved]
  - Hypokalaemia [Recovered/Resolved]
